FAERS Safety Report 6107416-6 (Version None)
Quarter: 2009Q1

REPORT INFORMATION
  Report Type: 
  Country: None (occurrence: None)
  Receive Date: 20090302
  Receipt Date: 20081112
  Transmission Date: 20090719
  Serious: Yes (Hospitalization)
  Sender: FDA-Public Use
  Company Number: FLCT20080197

PATIENT
  Age: 75 Year
  Sex: Female
  Weight: 63.5036 kg

DRUGS (4)
  1. FLECTOR [Suspect]
     Indication: PAIN
     Dosage: 1 PLASTER, 2 IN 1 D, TOPICAL
     Route: 061
     Dates: start: 20081106, end: 20081107
  2. DARVOCET-N 100 [Concomitant]
  3. AMBIEN CR [Concomitant]
  4. PREDNISONE [Concomitant]

REACTIONS (2)
  - ASTHMA [None]
  - DYSPNOEA [None]
